FAERS Safety Report 4325023-2 (Version None)
Quarter: 2004Q1

REPORT INFORMATION
  Report Type: 
  Country: None (occurrence: None)
  Receive Date: 20040326
  Receipt Date: 20040318
  Transmission Date: 20041129
  Serious: Yes (Hospitalization)
  Sender: FDA-Public Use
  Company Number: FR-ROCHE-362037

PATIENT
  Age: 50 Year
  Sex: Male

DRUGS (10)
  1. VESANOID [Suspect]
     Indication: DRUG USE FOR UNKNOWN INDICATION
     Dosage: 15 DAYS EVERY THREE MONTHS.
     Route: 048
     Dates: end: 20040213
  2. METHOTREXATE [Suspect]
     Indication: DRUG USE FOR UNKNOWN INDICATION
     Dosage: 6 DOSES PER WEEK.
     Route: 048
     Dates: end: 20040211
  3. STILNOX [Suspect]
     Indication: DRUG USE FOR UNKNOWN INDICATION
     Route: 048
  4. PURINETHOL [Suspect]
     Indication: DRUG USE FOR UNKNOWN INDICATION
     Route: 048
  5. UNKNOWN DRUG [Concomitant]
     Indication: DRUG USE FOR UNKNOWN INDICATION
     Dosage: DRUG: KAYARAL.
  6. DITROPAN [Concomitant]
     Indication: DRUG USE FOR UNKNOWN INDICATION
  7. DEROXAT [Concomitant]
     Indication: DRUG USE FOR UNKNOWN INDICATION
  8. DEBRIDAT [Concomitant]
  9. LANSOYL [Concomitant]
  10. OGAST [Concomitant]

REACTIONS (1)
  - INTERSTITIAL LUNG DISEASE [None]
